FAERS Safety Report 7218594-X (Version None)
Quarter: 2011Q1

REPORT INFORMATION
  Report Type: 
  Country: None (occurrence: None)
  Receive Date: 20110110
  Receipt Date: 20110107
  Transmission Date: 20110831
  Serious: Yes (Other)
  Sender: FDA-Public Use
  Company Number: US-AMGEN-USASP2011001063

PATIENT

DRUGS (4)
  1. DEXAMETHASONE [Concomitant]
  2. TRICOR [Concomitant]
  3. NPLATE [Suspect]
     Indication: PRODUCT USED FOR UNKNOWN INDICATION
     Dosage: 330 A?G, QWK
  4. PREDNISONE [Concomitant]
     Dosage: 40 MG, UNK

REACTIONS (1)
  - THERAPEUTIC RESPONSE DECREASED [None]
